FAERS Safety Report 18331670 (Version 1)
Quarter: 2020Q3

REPORT INFORMATION
  Report Type: Spontaneous
  Country: AT (occurrence: AT)
  Receive Date: 20200930
  Receipt Date: 20200930
  Transmission Date: 20201103
  Serious: Yes (Hospitalization)
  Sender: FDA-Public Use
  Company Number: AT-ARBOR PHARMACEUTICALS, LLC-AT-2020ARB000797

PATIENT
  Age: 33 Year
  Sex: Male

DRUGS (1)
  1. AMPHETAMINE SULFATE. [Suspect]
     Active Substance: AMPHETAMINE SULFATE
     Indication: SUBSTANCE USE
     Dosage: UNK

REACTIONS (2)
  - Drug abuse [Recovered/Resolved]
  - Intestinal ischaemia [Recovered/Resolved]
